FAERS Safety Report 25079221 (Version 1)
Quarter: 2025Q1

REPORT INFORMATION
  Report Type: Spontaneous
  Country: US (occurrence: None)
  Receive Date: 20250314
  Receipt Date: 20250314
  Transmission Date: 20250408
  Serious: Yes (Hospitalization)
  Sender: FDA-CTU
  Company Number: None

PATIENT
  Sex: Female

DRUGS (1)
  1. L-GLUTAMINE [Suspect]
     Active Substance: GLUTAMINE
     Indication: Sickle cell anaemia with crisis
     Dosage: 10GM 2 TIMES A DAY BY MOUTH
     Route: 048
     Dates: start: 20220907

REACTIONS (3)
  - Sickle cell anaemia with crisis [None]
  - Therapy interrupted [None]
  - Influenza [None]
